FAERS Safety Report 23539146 (Version 1)
Quarter: 2024Q1

REPORT INFORMATION
  Report Type: Spontaneous
  Country: US (occurrence: US)
  Receive Date: 20240219
  Receipt Date: 20240219
  Transmission Date: 20240410
  Serious: No
  Sender: FDA-Public Use
  Company Number: US-CTI BIOPHARMA-2023US04372

PATIENT

DRUGS (13)
  1. VONJO [Suspect]
     Active Substance: PACRITINIB
     Indication: Myelofibrosis
     Dosage: 200 MG, QD
     Route: 048
     Dates: start: 20231211
  2. AMOXICILLIN\CLAVULANATE POTASSIUM [Concomitant]
     Active Substance: AMOXICILLIN\CLAVULANATE POTASSIUM
  3. ESTRADIOL [Concomitant]
     Active Substance: ESTRADIOL
  4. FLORASTOR [LACTOBACILLUS ACIDOPHILUS] [Concomitant]
  5. HYDROCODONE BITARTRATE AND ACETAMINOPHEN [Concomitant]
     Active Substance: ACETAMINOPHEN\HYDROCODONE BITARTRATE
  6. LORAZEPAM [Concomitant]
     Active Substance: LORAZEPAM
  7. VITAMINS NOS [Concomitant]
     Active Substance: VITAMINS
  8. PREDNISONE [Concomitant]
     Active Substance: PREDNISONE
  9. PRILOSEC [Concomitant]
     Active Substance: OMEPRAZOLE MAGNESIUM
  10. SIMETHICONE (DIMETHICONE) [Concomitant]
     Active Substance: DIMETHICONE
  11. TYLENOL [Concomitant]
     Active Substance: ACETAMINOPHEN
  12. URSODIOL [Concomitant]
     Active Substance: URSODIOL
  13. VITAMIN D3 [Concomitant]
     Active Substance: CHOLECALCIFEROL

REACTIONS (1)
  - Asthenia [Not Recovered/Not Resolved]
